FAERS Safety Report 5279431-6 (Version None)
Quarter: 2007Q1

REPORT INFORMATION
  Report Type: 
  Country: None (occurrence: None)
  Receive Date: 20070328
  Receipt Date: 20070319
  Transmission Date: 20070707
  Serious: Yes (Hospitalization, Other)
  Sender: FDA-Public Use
  Company Number: US-AMGEN-US207082

PATIENT
  Sex: Female

DRUGS (16)
  1. PROCRIT [Suspect]
     Indication: RENAL FAILURE CHRONIC
     Route: 058
     Dates: start: 20010901
  2. VITAMIN B-12 [Concomitant]
     Route: 058
  3. ALDACTONE [Concomitant]
     Route: 048
  4. CATAPRES [Concomitant]
     Route: 048
  5. FOLIC ACID [Concomitant]
     Route: 048
  6. LIPITOR [Concomitant]
     Route: 048
  7. ZYLOPRIM [Concomitant]
     Route: 048
  8. NEURONTIN [Concomitant]
     Route: 048
  9. NORVASC [Concomitant]
     Route: 048
  10. NPH INSULIN [Concomitant]
     Route: 058
  11. INSULIN [Concomitant]
     Route: 058
  12. TOPROL-XL [Concomitant]
     Route: 048
  13. VASOTEC [Concomitant]
     Route: 048
  14. VIBRAMYCIN [Concomitant]
     Route: 048
  15. WARFARIN SODIUM [Concomitant]
     Route: 047
  16. ASPIRIN [Concomitant]
     Route: 048

REACTIONS (3)
  - APLASIA PURE RED CELL [None]
  - HAEMATOCRIT DECREASED [None]
  - PULMONARY EMBOLISM [None]
